FAERS Safety Report 9729272 (Version 1)
Quarter: 2013Q4

REPORT INFORMATION
  Report Type: Spontaneous
  Country: GB (occurrence: GB)
  Receive Date: 20131204
  Receipt Date: 20131204
  Transmission Date: 20140711
  Serious: Yes (Other)
  Sender: FDA-Public Use
  Company Number: GB-BRISTOL-MYERS SQUIBB COMPANY-19873496

PATIENT
  Age: 70 Year
  Sex: Male

DRUGS (1)
  1. MITOMYCIN-C [Suspect]

REACTIONS (8)
  - Bladder necrosis [Recovering/Resolving]
  - Bladder disorder [Recovering/Resolving]
  - Pelvic pain [Recovering/Resolving]
  - Proctalgia [Recovering/Resolving]
  - Hepatic necrosis [Recovering/Resolving]
  - Colostomy [Recovering/Resolving]
  - Nuclear magnetic resonance imaging [Recovering/Resolving]
  - Scar [Unknown]
